FAERS Safety Report 6772262-7 (Version None)
Quarter: 2010Q2

REPORT INFORMATION
  Report Type: 
  Country: None (occurrence: None)
  Receive Date: 20100616
  Receipt Date: 20090709
  Transmission Date: 20101027
  Serious: No
  Sender: FDA-Public Use
  Company Number: US-ASTRAZENECA-2009UW14793

PATIENT
  Age: 56 Year
  Sex: Female
  Weight: 99.8 kg

DRUGS (4)
  1. PULMICORT FLEXHALER [Suspect]
     Indication: ASTHMA
     Dosage: 180 UG 2 PUFFS IN AM 2 PUFFS IN PM, 720 UG TOTAL
     Route: 055
     Dates: start: 20090401
  2. XOPENEX [Concomitant]
  3. TYLENOL [Concomitant]
  4. PROTONIX [Concomitant]

REACTIONS (4)
  - DRUG EFFECT DECREASED [None]
  - FLUID RETENTION [None]
  - VAGINAL HAEMORRHAGE [None]
  - WRONG TECHNIQUE IN DRUG USAGE PROCESS [None]
